FAERS Safety Report 12885943 (Version 1)
Quarter: 2016Q4

REPORT INFORMATION
  Report Type: Spontaneous
  Country: US (occurrence: US)
  Receive Date: 20161026
  Receipt Date: 20161026
  Transmission Date: 20170207
  Serious: Yes (Hospitalization)
  Sender: FDA-Public Use
  Company Number: None

PATIENT
  Age: 92 Year
  Sex: Male
  Weight: 65.8 kg

DRUGS (14)
  1. FLONASE [Concomitant]
     Active Substance: FLUTICASONE PROPIONATE
  2. COZAAR [Concomitant]
     Active Substance: LOSARTAN POTASSIUM
  3. FLOMAX [Concomitant]
     Active Substance: TAMSULOSIN HYDROCHLORIDE
  4. PERICOLACE [Concomitant]
  5. GLIPIZIDE. [Suspect]
     Active Substance: GLIPIZIDE
     Indication: DIABETES MELLITUS
     Dosage: 5MG BID AC PO?CHRONIC
     Route: 048
  6. WARFARIN [Concomitant]
     Active Substance: WARFARIN
  7. PROSCAR [Concomitant]
     Active Substance: FINASTERIDE
  8. APAP [Concomitant]
     Active Substance: ACETAMINOPHEN
  9. DESYREL [Concomitant]
     Active Substance: TRAZODONE HYDROCHLORIDE
  10. THERGRAN [Concomitant]
  11. PROTONIX [Concomitant]
     Active Substance: PANTOPRAZOLE SODIUM
  12. ZOLOFT [Concomitant]
     Active Substance: SERTRALINE HYDROCHLORIDE
  13. ASA [Concomitant]
     Active Substance: ASPIRIN
  14. METFORMIN [Suspect]
     Active Substance: METFORMIN HYDROCHLORIDE
     Indication: DIABETES MELLITUS
     Dosage: 1000MG BID PO?CHRONIC
     Route: 048

REACTIONS (3)
  - Hypoglycaemia [None]
  - Hypophagia [None]
  - Duodenal ulcer [None]

NARRATIVE: CASE EVENT DATE: 20150404
